FAERS Safety Report 18188284 (Version 1)
Quarter: 2020Q3

REPORT INFORMATION
  Report Type: Spontaneous
  Country: CN (occurrence: CN)
  Receive Date: 20200824
  Receipt Date: 20200824
  Transmission Date: 20201103
  Serious: Yes (Other)
  Sender: FDA-Public Use
  Company Number: CN-BAYER-2020-175217

PATIENT
  Age: 53 Year
  Sex: Female
  Weight: 51 kg

DRUGS (1)
  1. AVELOX [Suspect]
     Active Substance: MOXIFLOXACIN HYDROCHLORIDE
     Indication: ANTI-INFECTIVE THERAPY
     Dosage: 400 MG, QD
     Route: 041
     Dates: start: 20200804, end: 20200804

REACTIONS (3)
  - Delirium [Recovering/Resolving]
  - Dysphoria [Recovering/Resolving]
  - Abnormal behaviour [Recovering/Resolving]

NARRATIVE: CASE EVENT DATE: 20200804
